FAERS Safety Report 8551904-X (Version None)
Quarter: 2012Q3

REPORT INFORMATION
  Report Type: 
  Country: None (occurrence: None)
  Receive Date: 20120730
  Receipt Date: 20120719
  Transmission Date: 20120928
  Serious: Yes (Death)
  Sender: FDA-Public Use
  Company Number: CN-BAXTER-2012BAX012256

PATIENT
  Sex: Male

DRUGS (2)
  1. 10% GLUCOSE  INJECTION [Suspect]
     Route: 041
     Dates: start: 20090303, end: 20090303
  2. CLAFORAN [Suspect]

REACTIONS (3)
  - DEATH [None]
  - FOAMING AT MOUTH [None]
  - CONVULSION [None]
